FAERS Safety Report 14651045 (Version 1)
Quarter: 2018Q1

REPORT INFORMATION
  Report Type: Other
  Country: JP (occurrence: JP)
  Receive Date: 20180316
  Receipt Date: 20180316
  Transmission Date: 20180509
  Serious: Yes (Death)
  Sender: FDA-Public Use
  Company Number: JP-GE HEALTHCARE LIFE SCIENCES-2018CSU001084

PATIENT

DRUGS (16)
  1. REBAMIPIDE [Concomitant]
     Active Substance: REBAMIPIDE
     Indication: PAIN
     Dosage: 100 MG, PRN
  2. NESP [Concomitant]
     Active Substance: DARBEPOETIN ALFA
     Dosage: UNK
     Route: 065
     Dates: start: 20171125, end: 20171125
  3. SOLDEM 1 [Concomitant]
     Active Substance: DEXTROSE\SODIUM CHLORIDE\SODIUM LACTATE
     Dosage: 200 ML, QD
     Route: 065
     Dates: start: 20171225, end: 20171225
  4. ISODINE [Concomitant]
     Active Substance: POVIDONE-IODINE
  5. TRAZENTA [Concomitant]
     Active Substance: LINAGLIPTIN
     Indication: DIABETES MELLITUS
     Dosage: 5 MG, QD
     Route: 065
  6. NOVORAPID [Concomitant]
     Active Substance: INSULIN ASPART
     Indication: DIABETES MELLITUS
     Dosage: 10 IU/MORNING, 4 IU/EVENING, BID
     Route: 065
  7. APISTANDIN [Concomitant]
     Dosage: 10 ?G, QD
     Dates: start: 20171223
  8. VISIPAQUE [Suspect]
     Active Substance: IODIXANOL
     Indication: PRODUCT USED FOR UNKNOWN INDICATION
     Dosage: 115 ML, SINGLE
     Route: 041
     Dates: start: 20171225, end: 20171225
  9. TAZOPIP [Suspect]
     Active Substance: PIPERACETAZINE\TAZOBACTAM
     Indication: PERIPHERAL ISCHAEMIA
     Dosage: 9 G, QD
     Route: 041
     Dates: start: 20171223, end: 20171226
  10. XYLOCAINE [Concomitant]
     Active Substance: LIDOCAINE HYDROCHLORIDE
     Dosage: 10 ML, QD
     Route: 065
     Dates: start: 20171225, end: 20171225
  11. HEPARIN [Concomitant]
     Active Substance: HEPARIN SODIUM
     Dosage: UNK
     Route: 065
     Dates: start: 20171225, end: 20171225
  12. ROCALTROL [Concomitant]
     Active Substance: CALCITRIOL
     Dosage: UNK
     Route: 065
     Dates: start: 20171225, end: 20171225
  13. LOXONIN [Concomitant]
     Active Substance: LOXOPROFEN SODIUM
     Dosage: 60 MG, UNK
     Dates: start: 20171223
  14. PRINK [Concomitant]
     Active Substance: ALPROSTADIL
     Dosage: UNK UNK, QD
     Route: 065
     Dates: start: 20171223, end: 20171229
  15. DEXMEDETOMIDINE HYDROCHLORIDE. [Concomitant]
     Active Substance: DEXMEDETOMIDINE HYDROCHLORIDE
     Dosage: 10 ?G, QD
     Route: 065
     Dates: start: 20171225, end: 20171225
  16. PROTAMINE SULFATE. [Concomitant]
     Active Substance: PROTAMINE SULFATE
     Dosage: 1 ML, QD
     Route: 065
     Dates: start: 20171225, end: 20171225

REACTIONS (1)
  - Toxic epidermal necrolysis [Fatal]

NARRATIVE: CASE EVENT DATE: 20171226
